FAERS Safety Report 19170328 (Version 1)
Quarter: 2021Q2

REPORT INFORMATION
  Report Type: Spontaneous
  Country: US (occurrence: US)
  Receive Date: 20210422
  Receipt Date: 20210422
  Transmission Date: 20210717
  Serious: No
  Sender: FDA-Public Use
  Company Number: US-PFIZER INC-2021350881

PATIENT
  Age: 54 Year
  Sex: Female
  Weight: 99.77 kg

DRUGS (6)
  1. IBRANCE [Suspect]
     Active Substance: PALBOCICLIB
     Indication: BREAST CANCER FEMALE
     Dosage: 100 MG, DAILY FOR 21 DAYS
     Route: 048
     Dates: start: 20170101
  2. ELIQUIS [Concomitant]
     Active Substance: APIXABAN
  3. FOLIC ACID. [Concomitant]
     Active Substance: FOLIC ACID
  4. ZYRTEC [Concomitant]
     Active Substance: CETIRIZINE HYDROCHLORIDE
  5. KETOCONAZOLE. [Concomitant]
     Active Substance: KETOCONAZOLE
  6. TRIAMCINOLONE ACETONIDE. [Concomitant]
     Active Substance: TRIAMCINOLONE ACETONIDE

REACTIONS (1)
  - Hepatic enzyme increased [Unknown]
